FAERS Safety Report 9298610 (Version 1)
Quarter: 2013Q2

REPORT INFORMATION
  Report Type: Spontaneous
  Country: DE (occurrence: DE)
  Receive Date: 20130520
  Receipt Date: 20130520
  Transmission Date: 20140414
  Serious: Yes (Hospitalization)
  Sender: FDA-Public Use
  Company Number: DE-ELI_LILLY_AND_COMPANY-DE201305005241

PATIENT
  Age: 0 None
  Sex: Male
  Weight: 25.4 kg

DRUGS (4)
  1. STRATTERA [Suspect]
     Indication: ATTENTION DEFICIT/HYPERACTIVITY DISORDER
     Dosage: 10 MG, QD
     Route: 048
     Dates: start: 20120123, end: 20120129
  2. STRATTERA [Suspect]
     Dosage: 18 MG, QD
     Route: 048
     Dates: start: 20120130, end: 20120203
  3. STRATTERA [Suspect]
     Dosage: 25 MG, QD
     Route: 048
     Dates: start: 20120303, end: 20120308
  4. MEDIKINET [Concomitant]
     Indication: ATTENTION DEFICIT/HYPERACTIVITY DISORDER
     Dosage: 10 MG, QD
     Route: 048
     Dates: start: 20111115, end: 20120303

REACTIONS (5)
  - Bradycardia [Recovering/Resolving]
  - Blood pressure increased [Recovering/Resolving]
  - Sinus tachycardia [Recovering/Resolving]
  - Bronchitis [Unknown]
  - Parainfluenzae virus infection [Unknown]
